FAERS Safety Report 13828594 (Version 1)
Quarter: 2017Q3

REPORT INFORMATION
  Report Type: Spontaneous
  Country: US (occurrence: US)
  Receive Date: 20170803
  Receipt Date: 20170803
  Transmission Date: 20171127
  Serious: Yes (Death, Life-Threatening, Hospitalization, Disabling, Other)
  Sender: FDA-Public Use
  Company Number: US-JNJFOC-20170720922

PATIENT

DRUGS (2)
  1. ACETAMINOPHEN. [Suspect]
     Active Substance: ACETAMINOPHEN
     Route: 065
  2. ACETAMINOPHEN. [Suspect]
     Active Substance: ACETAMINOPHEN
     Indication: PRODUCT USED FOR UNKNOWN INDICATION
     Route: 065

REACTIONS (18)
  - Drug interaction [Fatal]
  - Bradycardia [Fatal]
  - Iatrogenic injury [Fatal]
  - Drug dispensing error [Fatal]
  - Exposure during breast feeding [Fatal]
  - Medication error [Fatal]
  - Dizziness [Fatal]
  - Wrong drug administered [Fatal]
  - Somnolence [Fatal]
  - Hypotension [Fatal]
  - Incorrect dose administered [Fatal]
  - Incorrect drug dosage form administered [Fatal]
  - Vertigo [Fatal]
  - Inappropriate schedule of drug administration [Fatal]
  - Incorrect route of drug administration [Fatal]
  - Product selection error [Fatal]
  - Lethargy [Fatal]
  - Tachycardia [Fatal]
